FAERS Safety Report 9562283 (Version 2)
Quarter: 2013Q4

REPORT INFORMATION
  Report Type: Spontaneous
  Country: US (occurrence: US)
  Receive Date: 20130927
  Receipt Date: 20131217
  Transmission Date: 20140711
  Serious: No
  Sender: FDA-Public Use
  Company Number: US-GLAXOSMITHKLINE-A1039223A

PATIENT
  Sex: Male

DRUGS (1)
  1. MEKINIST [Suspect]
     Indication: NEOPLASM MALIGNANT

REACTIONS (2)
  - Local swelling [Unknown]
  - Diarrhoea [Unknown]
